FAERS Safety Report 9403698 (Version 5)
Quarter: 2014Q3

REPORT INFORMATION
  Report Type: Report from Study
  Country: RO (occurrence: RO)
  Receive Date: 20130717
  Receipt Date: 20140922
  Transmission Date: 20150326
  Serious: Yes (Death)
  Sender: FDA-Public Use
  Company Number: RO-BRISTOL-MYERS SQUIBB COMPANY-19102102

PATIENT
  Age: 72 Year
  Sex: Male

DRUGS (9)
  1. FUROSEMIDE. [Concomitant]
     Active Substance: FUROSEMIDE
     Dates: start: 20130430, end: 20130708
  2. CARBOPLATIN. [Suspect]
     Active Substance: CARBOPLATIN
     Indication: NON-SMALL CELL LUNG CANCER
     Dates: start: 20130703, end: 20130703
  3. DIGOXIN. [Concomitant]
     Active Substance: DIGOXIN
     Dates: start: 20130430, end: 20130709
  4. THEOTARD [Concomitant]
     Dates: start: 20130430, end: 20130709
  5. PREDUCTAL [Concomitant]
     Active Substance: TRIMETAZIDINE DIHYDROCHLORIDE
     Dates: start: 20130403, end: 20130709
  6. IVABRADINE [Concomitant]
     Active Substance: IVABRADINE
     Dates: start: 20130430, end: 20130709
  7. DIUREX [Concomitant]
     Active Substance: PAMABROM
     Dates: start: 20130430, end: 20130708
  8. ASPIRIN CARDIO [Concomitant]
     Active Substance: ASPIRIN
     Dates: start: 20130430, end: 20130709
  9. PACLITAXEL. [Suspect]
     Active Substance: PACLITAXEL
     Indication: NON-SMALL CELL LUNG CANCER
     Dosage: 1DF: 278.25 UNIT NOS
     Dates: start: 20130703, end: 20130703

REACTIONS (2)
  - Dehydration [Fatal]
  - Cardio-respiratory arrest [Fatal]

NARRATIVE: CASE EVENT DATE: 20130708
